FAERS Safety Report 5825561-7 (Version None)
Quarter: 2008Q3

REPORT INFORMATION
  Report Type: 
  Country: None (occurrence: None)
  Receive Date: 20080725
  Receipt Date: 20080725
  Transmission Date: 20090109
  Serious: No
  Sender: FDA-Public Use
  Company Number: None

PATIENT
  Age: 41 Year
  Sex: Female
  Weight: 60.3284 kg

DRUGS (1)
  1. FLURESS [Suspect]
     Indication: OPHTHALMOLOGICAL EXAMINATION
     Dosage: PRIMARY - 1/2 HOUR
     Dates: start: 20070815, end: 20070815

REACTIONS (1)
  - SYNCOPE VASOVAGAL [None]
